FAERS Safety Report 16176053 (Version 1)
Quarter: 2019Q2

REPORT INFORMATION
  Report Type: Spontaneous
  Country: FR (occurrence: FR)
  Receive Date: 20190409
  Receipt Date: 20190409
  Transmission Date: 20190711
  Serious: Yes (Hospitalization)
  Sender: FDA-Public Use
  Company Number: FR-MYLANLABS-2019M1032844

PATIENT
  Age: 79 Year
  Sex: Male
  Weight: 95 kg

DRUGS (15)
  1. ALLOPURINOL. [Suspect]
     Active Substance: ALLOPURINOL
     Indication: PRODUCT USED FOR UNKNOWN INDICATION
     Dosage: 200 MILLIGRAM, QD
     Route: 048
     Dates: start: 201802, end: 20180903
  2. LIPANTHYL 160 MG, COMPRIM? PELLICUL? [Suspect]
     Active Substance: FENOFIBRATE
     Indication: DYSLIPIDAEMIA
     Dosage: 160 MILLIGRAM, QD
     Route: 048
     Dates: start: 201802
  3. SPECIAFOLDINE [Concomitant]
     Active Substance: FOLIC ACID
  4. VOGALENE [Concomitant]
     Active Substance: METOPIMAZINE
  5. PARACETAMOL [Concomitant]
     Active Substance: ACETAMINOPHEN
     Dosage: UNK
  6. STAGID [Suspect]
     Active Substance: METFORMIN PAMOATE
     Indication: TYPE 2 DIABETES MELLITUS
     Dosage: 1400 MILLIGRAM, QD
     Route: 048
     Dates: start: 201806, end: 20180903
  7. KARDEGIC [Concomitant]
     Active Substance: ASPIRIN DL-LYSINE
     Dosage: UNK
  8. CORVASAL                           /00547101/ [Concomitant]
     Active Substance: MOLSIDOMINE
     Dosage: UNK
  9. DUPHALAC [Concomitant]
     Active Substance: LACTULOSE
  10. BISOCE [Concomitant]
     Active Substance: BISOPROLOL
     Dosage: UNK
  11. EPINITRIL [Concomitant]
     Active Substance: NITROGLYCERIN
  12. NORSET [Concomitant]
     Active Substance: MIRTAZAPINE
  13. NICORANDIL [Concomitant]
     Active Substance: NICORANDIL
     Dosage: UNK
  14. OGASTORO [Concomitant]
     Active Substance: LANSOPRAZOLE
     Dosage: UNK
  15. LEXOMIL [Concomitant]
     Active Substance: BROMAZEPAM
     Dosage: UNK

REACTIONS (1)
  - Pancreatitis acute [Recovering/Resolving]

NARRATIVE: CASE EVENT DATE: 20180903
